FAERS Safety Report 25591102 (Version 1)
Quarter: 2025Q3

REPORT INFORMATION
  Report Type: Spontaneous
  Country: US (occurrence: None)
  Receive Date: 20250722
  Receipt Date: 20250722
  Transmission Date: 20251020
  Serious: Yes (Death, Hospitalization)
  Sender: FDA-CTU
  Company Number: None

PATIENT
  Age: 83 Year
  Sex: Male
  Weight: 99.9 kg

DRUGS (16)
  1. CARBOPLATIN [Suspect]
     Active Substance: CARBOPLATIN
  2. DURVALUMAB [Suspect]
     Active Substance: DURVALUMAB
  3. PACLITAXEL [Suspect]
     Active Substance: PACLITAXEL
  4. TAXOL [Suspect]
     Active Substance: PACLITAXEL
  5. ACETAMINOPHEN [Concomitant]
     Active Substance: ACETAMINOPHEN
  6. ALFUZOSIN [Concomitant]
     Active Substance: ALFUZOSIN
  7. Arnlodipine [Concomitant]
  8. APIXABAN [Concomitant]
     Active Substance: APIXABAN
  9. Cholecalciforol [Concomitant]
  10. Coenzyme Q? 10 [Concomitant]
  11. Dextromcthorphan [Concomitant]
  12. Dipherihydrarnine-Acetarninophen [Concomitant]
  13. GUAIFENESIN [Concomitant]
     Active Substance: GUAIFENESIN
  14. METOPROLOL [Concomitant]
     Active Substance: METOPROLOL
  15. PRAVASTATIN [Concomitant]
     Active Substance: PRAVASTATIN
  16. SILDENAFIL [Concomitant]
     Active Substance: SILDENAFIL

REACTIONS (8)
  - Cardiac failure [None]
  - Aortic stenosis [None]
  - Pneumonitis [None]
  - Atrial fibrillation [None]
  - Respiratory failure [None]
  - Enterococcal bacteraemia [None]
  - Pneumonia bacterial [None]
  - Bacterial infection [None]

NARRATIVE: CASE EVENT DATE: 20250630
